FAERS Safety Report 8599777-3 (Version None)
Quarter: 2012Q3

REPORT INFORMATION
  Report Type: 
  Country: None (occurrence: None)
  Receive Date: 20120816
  Receipt Date: 20120601
  Transmission Date: 20120928
  Serious: No
  Sender: FDA-Public Use
  Company Number: US-009507513-1208USA004632

PATIENT

DRUGS (1)
  1. DR. SCHOLL'S CLEAR AWAY PLANTAR PATCH [Suspect]
     Indication: SKIN PAPILLOMA
     Dosage: UNK, UNKNOWN

REACTIONS (1)
  - DRUG INEFFECTIVE [None]
